FAERS Safety Report 9316832 (Version 1)
Quarter: 2013Q1

REPORT INFORMATION
  Report Type: Spontaneous
  Country: KR (occurrence: None)
  Receive Date: 20121204
  Receipt Date: 20121204
  Transmission Date: 20140127
  Serious: Yes (Hospitalization)
  Sender: FDA-Public Use
  Company Number: KR-2012-2645

PATIENT
  Age: 40 Year
  Sex: Female
  Weight: 57.7 kg

DRUGS (10)
  1. NAVELBINE (VINORELBINE TARTRATE) SOLUTION [Suspect]
     Indication: BREAST CANCER METASTATIC
     Route: 042
     Dates: start: 20120316
  2. BIBW 2992 (AFATINIB) [Suspect]
     Indication: BREAST CANCER METASTATIC
     Dates: start: 20120316
  3. ZOLPIDEM (ZOLPIDEM TARTRATE) [Concomitant]
  4. LYRICA (PREGABALIN) [Concomitant]
  5. FEROBA [Concomitant]
  6. POVIDONE (POVIDONE) [Concomitant]
  7. HEXAMIDINE (HEXAMIDINE) [Concomitant]
  8. ALMAGATE (ALMAGATE) [Concomitant]
  9. LACTICARE [Concomitant]
  10. DICAMAX [Concomitant]

REACTIONS (6)
  - Febrile neutropenia [None]
  - Anaemia [None]
  - Abdominal pain [None]
  - Haemorrhoids [None]
  - Dry eye [None]
  - Insomnia [None]
